FAERS Safety Report 9631812 (Version 1)
Quarter: 2013Q4

REPORT INFORMATION
  Report Type: Spontaneous
  Country: BR (occurrence: None)
  Receive Date: 20131016
  Receipt Date: 20131016
  Transmission Date: 20140711
  Serious: Yes (Hospitalization)
  Sender: FDA-Public Use
  Company Number: DSU-2013-04804

PATIENT
  Age: 29 Year
  Sex: Male
  Weight: 103 kg

DRUGS (1)
  1. OLMETEC ANLO [Suspect]
     Indication: HYPERTENSION
     Route: 048
     Dates: start: 201203

REACTIONS (1)
  - Anal fistula [None]
